FAERS Safety Report 6876855-8 (Version None)
Quarter: 2010Q3

REPORT INFORMATION
  Report Type: 
  Country: None (occurrence: None)
  Receive Date: 20100727
  Receipt Date: 20100714
  Transmission Date: 20110219
  Serious: Yes (Other)
  Sender: FDA-Public Use
  Company Number: US-ROCHE-713540

PATIENT
  Sex: Male
  Weight: 81.8 kg

DRUGS (8)
  1. XELODA [Suspect]
     Dosage: LAST DOSE: 02 JUNE 2010
     Route: 065
  2. AVASTIN [Suspect]
     Route: 042
     Dates: start: 20090324, end: 20090526
  3. AVASTIN [Suspect]
     Dosage: LAST DOSE: 02 JUNE 2010
     Route: 042
  4. OXALIPLATIN [Concomitant]
     Dosage: LAST DOSE: 02 JUNE 2010
  5. IRINOTECAN HCL [Concomitant]
  6. ERBITUX [Concomitant]
  7. FLUOROURACIL [Concomitant]
  8. LEUCOVORIN CALCIUM [Concomitant]

REACTIONS (1)
  - ANAL FISTULA [None]
